FAERS Safety Report 8321958-4 (Version None)
Quarter: 2012Q2

REPORT INFORMATION
  Report Type: 
  Country: None (occurrence: None)
  Receive Date: 20120430
  Receipt Date: 20120420
  Transmission Date: 20120825
  Serious: Yes (Other)
  Sender: FDA-Public Use
  Company Number: FR-ABBOTT-12P-056-0928303-00

PATIENT
  Age: 24 Year
  Sex: Female

DRUGS (5)
  1. ACETAMINOPHEN W/ PROPOXYPHENE HCL [Concomitant]
     Indication: ABDOMINAL PAIN
     Dosage: 400MG/30MG
     Dates: start: 20090101
  2. ALUMINUM HYDROXIDE AND MAGNESIUM TRISILICATE [Concomitant]
     Indication: DIARRHOEA
     Dates: start: 20090303
  3. ALUMINUM HYDROXIDE AND MAGNESIUM TRISILICATE [Concomitant]
     Indication: CROHN'S DISEASE
  4. ACETAMINOPHEN W/ PROPOXYPHENE HCL [Concomitant]
     Indication: CROHN'S DISEASE
  5. HUMIRA [Suspect]
     Indication: CROHN'S DISEASE
     Route: 058
     Dates: start: 20051216, end: 20091126

REACTIONS (2)
  - CROHN'S DISEASE [None]
  - SUBILEUS [None]
